FAERS Safety Report 4653082-6 (Version None)
Quarter: 2005Q2

REPORT INFORMATION
  Report Type: 
  Country: None (occurrence: None)
  Receive Date: 20050505
  Receipt Date: 20050427
  Transmission Date: 20051028
  Serious: Yes (Other)
  Sender: FDA-Public Use
  Company Number: DE-MERCK-0504DEU00230

PATIENT
  Sex: Female

DRUGS (2)
  1. VYTORIN [Suspect]
     Route: 048
  2. INSULIN [Concomitant]
     Route: 065

REACTIONS (1)
  - EPILEPSY [None]
